FAERS Safety Report 8123628-4 (Version None)
Quarter: 2012Q1

REPORT INFORMATION
  Report Type: 
  Country: None (occurrence: None)
  Receive Date: 20120208
  Receipt Date: 20120203
  Transmission Date: 20120608
  Serious: Yes (Other)
  Sender: FDA-Public Use
  Company Number: PHEH2011US011195

PATIENT
  Sex: Female
  Weight: 50.794 kg

DRUGS (16)
  1. METOPROLOL [Concomitant]
     Dosage: UNK UKN, UNK
  2. PREMARIN [Concomitant]
     Dosage: 0.625 MG, QD
  3. DIURETICS [Concomitant]
     Dosage: UNK UKN, UNK
  4. TOPROL-XL [Concomitant]
     Dosage: 50 MG, QD
  5. AMARYL [Concomitant]
     Dosage: 1 MG, BID
  6. INSULIN [Concomitant]
     Dosage: UNK UKN, UNK
  7. GLIMEPIRIDE [Concomitant]
     Dosage: UNK UKN, UNK
  8. LIPITOR [Concomitant]
     Dosage: 10 MG, QD
  9. VITAMIN D [Concomitant]
     Dosage: UNK UKN, UNK
  10. LASIX [Concomitant]
     Dosage: UNK UKN, UNK
  11. AMLODIPINE [Concomitant]
     Dosage: 10 MG, UNK
     Route: 048
  12. CIPROFLOXACIN [Concomitant]
  13. RECLAST [Suspect]
     Indication: OSTEOPOROSIS POSTMENOPAUSAL
     Dosage: 5 MG, YEARLY
     Route: 042
     Dates: start: 20110927
  14. SYNTHROID [Concomitant]
     Dosage: 0.1 MG, QD
     Route: 048
  15. METFORMIN HCL [Concomitant]
     Dosage: 1000 MG, BID
  16. MULTI-VITAMINS [Concomitant]
     Dosage: UNK UKN, UNK

REACTIONS (3)
  - MICTURITION URGENCY [None]
  - BLOOD CREATININE INCREASED [None]
  - URINARY TRACT INFECTION [None]
